FAERS Safety Report 7765032-4 (Version None)
Quarter: 2011Q3

REPORT INFORMATION
  Report Type: 
  Country: None (occurrence: None)
  Receive Date: 20110921
  Receipt Date: 20110921
  Transmission Date: 20111222
  Serious: No
  Sender: FDA-Public Use
  Company Number: US-PFIZER INC-2011187263

PATIENT
  Sex: Male
  Weight: 95.238 kg

DRUGS (8)
  1. OXYCODONE HYDROCHLORIDE [Suspect]
     Indication: SPINAL COLUMN STENOSIS
     Dosage: 10 MG, DAILY
     Route: 048
  2. LEXAPRO [Concomitant]
     Indication: ANXIETY
  3. LEXAPRO [Concomitant]
     Indication: ANTIDEPRESSANT THERAPY
     Dosage: 20 MG, DAILY
     Route: 048
     Dates: start: 20010101
  4. CHANTIX [Suspect]
     Indication: SMOKING CESSATION THERAPY
     Dosage: 0.5 MG, DAILY
     Route: 048
     Dates: start: 20110720
  5. LAMICTAL [Concomitant]
     Indication: BIPOLAR I DISORDER
     Dosage: 200 MG, DAILY
     Route: 048
     Dates: start: 20010101
  6. TRAZODONE [Concomitant]
     Indication: DEPRESSION
     Dosage: 200 MG, DAILY
     Route: 048
     Dates: start: 20010101
  7. CHANTIX [Suspect]
     Dosage: 0.5 MG, 2X/DAY
     Route: 048
     Dates: end: 20110725
  8. OXYCODONE HYDROCHLORIDE [Suspect]
     Indication: OSTEOARTHRITIS
     Dosage: 7.5 MG, DAILY
     Route: 048
     Dates: start: 20101101

REACTIONS (4)
  - DRUG INEFFECTIVE [None]
  - FEELING ABNORMAL [None]
  - DRUG INTERACTION [None]
  - PAIN [None]
